FAERS Safety Report 14131839 (Version 1)
Quarter: 2017Q4

REPORT INFORMATION
  Report Type: Spontaneous
  Country: KR (occurrence: KR)
  Receive Date: 20171026
  Receipt Date: 20171026
  Transmission Date: 20180321
  Serious: Yes (Hospitalization, Other)
  Sender: FDA-Public Use
  Company Number: KR-MYLANLABS-2017M1067464

PATIENT
  Age: 47 Year
  Sex: Female

DRUGS (3)
  1. CLOZAPINE. [Suspect]
     Active Substance: CLOZAPINE
     Dosage: UNK
  2. CLOZAPINE. [Suspect]
     Active Substance: CLOZAPINE
     Dosage: UNK
     Route: 065
  3. CLOZAPINE. [Suspect]
     Active Substance: CLOZAPINE
     Indication: SCHIZOPHRENIA
     Dosage: UNK
     Dates: start: 2004

REACTIONS (24)
  - Neuroleptic malignant syndrome [Unknown]
  - Somnolence [Not Recovered/Not Resolved]
  - Rhabdomyolysis [Unknown]
  - Intentional overdose [Unknown]
  - Urosepsis [Unknown]
  - Myeloproliferative neoplasm [Unknown]
  - Azotaemia [Unknown]
  - Muscle enzyme increased [Unknown]
  - Hypotension [Unknown]
  - Sepsis [Unknown]
  - Treatment noncompliance [Recovered/Resolved]
  - Haematuria [Unknown]
  - Leukocytosis [Recovered/Resolved]
  - Pyrexia [Not Recovered/Not Resolved]
  - Metabolic acidosis [Unknown]
  - Suicide attempt [Unknown]
  - Inflammation [Unknown]
  - CSF protein increased [Unknown]
  - Incoherent [Unknown]
  - Anuria [Unknown]
  - Respiratory distress [Unknown]
  - Generalised tonic-clonic seizure [Recovered/Resolved]
  - Pulmonary oedema [Recovering/Resolving]
  - Escherichia test positive [Unknown]
